FAERS Safety Report 15937303 (Version 2)
Quarter: 2019Q2

REPORT INFORMATION
  Report Type: Spontaneous
  Country: US (occurrence: US)
  Receive Date: 20190208
  Receipt Date: 20190423
  Transmission Date: 20190711
  Serious: No
  Sender: FDA-Public Use
  Company Number: US-MYLANLABS-2019M1007261

PATIENT
  Age: 72 Year
  Sex: Female

DRUGS (1)
  1. ESTRADIOL VAGINAL CREAM USP [Suspect]
     Active Substance: ESTRADIOL
     Indication: PROLAPSE
     Dosage: UNK UNK, 3XW
     Route: 067

REACTIONS (1)
  - Weight increased [Not Recovered/Not Resolved]
